FAERS Safety Report 12212339 (Version 1)
Quarter: 2016Q1

REPORT INFORMATION
  Report Type: Other
  Country: US (occurrence: US)
  Receive Date: 20160325
  Receipt Date: 20160325
  Transmission Date: 20160526
  Serious: No
  Sender: FDA-Public Use
  Company Number: US-DEP_02574_2015

PATIENT
  Age: 42 Year
  Sex: Male
  Weight: 74 kg

DRUGS (5)
  1. GRALISE [Suspect]
     Active Substance: GABAPENTIN
     Indication: NEUROPATHY PERIPHERAL
     Dosage: DF, 2-3 TABLETS, ONCE DAILY, WITH EVENING MEAL, UNKNOWN TITRATION SCHEDULE
     Route: 048
     Dates: start: 201412
  2. GRALISE [Suspect]
     Active Substance: GABAPENTIN
     Indication: RADICULOPATHY
     Dosage: DF, 2-3 TABLETS, ONCE DAILY, WITH EVENING MEAL, UNKNOWN TITRATION SCHEDULE
     Route: 048
     Dates: start: 201412
  3. GRALISE [Suspect]
     Active Substance: GABAPENTIN
     Indication: OFF LABEL USE
     Dosage: DF, 2-3 TABLETS, ONCE DAILY, WITH EVENING MEAL, UNKNOWN TITRATION SCHEDULE
     Route: 048
     Dates: start: 201412
  4. GRALISE [Suspect]
     Active Substance: GABAPENTIN
     Indication: PAIN
     Dosage: DF, 2-3 TABLETS, ONCE DAILY, WITH EVENING MEAL, UNKNOWN TITRATION SCHEDULE
     Route: 048
     Dates: start: 201412
  5. GRALISE [Suspect]
     Active Substance: GABAPENTIN
     Indication: NEURALGIA
     Dosage: DF, 2-3 TABLETS, ONCE DAILY, WITH EVENING MEAL, UNKNOWN TITRATION SCHEDULE
     Route: 048
     Dates: start: 201412

REACTIONS (1)
  - Drug ineffective for unapproved indication [Not Recovered/Not Resolved]

NARRATIVE: CASE EVENT DATE: 201412
